FAERS Safety Report 5261642-7 (Version None)
Quarter: 2007Q1

REPORT INFORMATION
  Report Type: 
  Country: None (occurrence: None)
  Receive Date: 20070308
  Receipt Date: 20070205
  Transmission Date: 20070707
  Serious: No
  Sender: FDA-Public Use
  Company Number: 070202711

PATIENT
  Age: 58 Year
  Sex: Female
  Weight: 15.8759 kg

DRUGS (1)
  1. DELSYM [Suspect]
     Indication: COUGH
     Dosage: 82ML, ONCE, ORAL
     Route: 048
     Dates: start: 20070129, end: 20070131

REACTIONS (7)
  - ACCIDENTAL OVERDOSE [None]
  - BLEPHAROSPASM [None]
  - FEELING DRUNK [None]
  - FOAMING AT MOUTH [None]
  - HALLUCINATION [None]
  - HEART RATE INCREASED [None]
  - RETCHING [None]
